FAERS Safety Report 8798237 (Version 2)
Quarter: 2012Q4

REPORT INFORMATION
  Report Type: 
  Country: US (occurrence: US)
  Receive Date: 20120919
  Receipt Date: 20121016
  Transmission Date: 20130627
  Serious: Yes (Death)
  Sender: FDA-Public Use
  Company Number: US-ROCHE-1125014

PATIENT
  Age: 48 Year
  Sex: Female

DRUGS (4)
  1. AVASTIN [Suspect]
     Indication: OVARIAN CANCER
     Route: 042
     Dates: start: 20070807, end: 20080122
  2. AVASTIN [Suspect]
     Indication: METASTASES TO PERITONEUM
  3. AVASTIN [Suspect]
     Indication: MALIGNANT NEOPLASM OF UTERINE ADNEXA
  4. AVASTIN [Suspect]
     Indication: RETROPERITONEAL CANCER

REACTIONS (1)
  - Disease progression [Fatal]
